FAERS Safety Report 8826309 (Version 1)
Quarter: 2012Q4

REPORT INFORMATION
  Report Type: 
  Country: US (occurrence: US)
  Receive Date: 20121008
  Receipt Date: 20121008
  Transmission Date: 20130627
  Serious: No
  Sender: FDA-Public Use
  Company Number: US-GLAXOSMITHKLINE-A0991803A

PATIENT
  Sex: Female

DRUGS (2)
  1. POTIGA [Suspect]
     Indication: CONVULSION
     Dosage: 50MG Twice per day
     Route: 048
  2. BENZODIAZEPINE [Concomitant]

REACTIONS (1)
  - Urinary retention [Not Recovered/Not Resolved]
